FAERS Safety Report 14979284 (Version 1)
Quarter: 2018Q2

REPORT INFORMATION
  Report Type: Spontaneous
  Country: US (occurrence: US)
  Receive Date: 20180606
  Receipt Date: 20180606
  Transmission Date: 20180711
  Serious: No
  Sender: FDA-Public Use
  Company Number: US-MYLANLABS-2018M1031304

PATIENT
  Age: 64 Year
  Sex: Female
  Weight: 57 kg

DRUGS (2)
  1. ESTRADIOL. [Suspect]
     Active Substance: ESTRADIOL
     Dosage: 0.037 MG, BIWEEKLY
  2. ESTRADIOL. [Suspect]
     Active Substance: ESTRADIOL
     Indication: MENOPAUSE
     Dosage: 0.05 MG, BIWEEKLY
     Route: 062

REACTIONS (4)
  - Migraine [Recovered/Resolved]
  - Breast tenderness [Not Recovered/Not Resolved]
  - Night sweats [Recovered/Resolved]
  - Hot flush [Recovered/Resolved]
